FAERS Safety Report 4665527-6 (Version None)
Quarter: 2005Q2

REPORT INFORMATION
  Report Type: 
  Country: None (occurrence: None)
  Receive Date: 20050519
  Receipt Date: 20050131
  Transmission Date: 20051028
  Serious: Yes (Disabling, Other)
  Sender: FDA-Public Use
  Company Number: US-BRISTOL-MYERS SQUIBB COMPANY-12843694

PATIENT
  Age: 62 Year
  Sex: Male
  Weight: 91 kg

DRUGS (1)
  1. MUTAMYCIN [Suspect]
     Indication: BLADDER CANCER
     Route: 043
     Dates: start: 20040101

REACTIONS (4)
  - DYSURIA [None]
  - GENITAL RASH [None]
  - OEDEMA GENITAL [None]
  - PENILE ULCERATION [None]
